FAERS Safety Report 5239846-9 (Version None)
Quarter: 2007Q1

REPORT INFORMATION
  Report Type: 
  Country: None (occurrence: None)
  Receive Date: 20070216
  Receipt Date: 20070212
  Transmission Date: 20070707
  Serious: Yes (Other)
  Sender: FDA-Public Use
  Company Number: IL-ROXANE LABORATORIES, INC-2007-BP-02099RO

PATIENT
  Age: 55 Year
  Sex: Male

DRUGS (4)
  1. PREDNISONE TAB [Suspect]
     Indication: IMMUNOSUPPRESSION
     Dosage: 5 MG/DAY
     Route: 048
  2. TACROLIMUS [Suspect]
     Indication: IMMUNOSUPPRESSION
  3. MYCOPHENOLATE MOFETIL [Suspect]
     Indication: IMMUNOSUPPRESSION
     Dosage: 2 GM/DAY
     Route: 048
  4. SIROLIMUS [Suspect]
     Indication: IMMUNOSUPPRESSION

REACTIONS (10)
  - ASTHENIA [None]
  - BASAL CELL CARCINOMA [None]
  - DISTURBANCE IN ATTENTION [None]
  - KERATOACANTHOMA [None]
  - MUIR-TORRE SYNDROME [None]
  - MUSCLE SPASMS [None]
  - NEOPLASM MALIGNANT [None]
  - POLYP COLORECTAL [None]
  - PRURITUS [None]
  - SEBACEOUS ADENOMA [None]
